FAERS Safety Report 15865276 (Version 1)
Quarter: 2019Q1

REPORT INFORMATION
  Report Type: Spontaneous
  Country: FR (occurrence: FR)
  Receive Date: 20190124
  Receipt Date: 20190124
  Transmission Date: 20190417
  Serious: Yes (Hospitalization)
  Sender: FDA-Public Use
  Company Number: FR-ROCHE-2251435

PATIENT
  Age: 78 Year
  Sex: Male
  Weight: 55 kg

DRUGS (2)
  1. GAZYVARO [Suspect]
     Active Substance: OBINUTUZUMAB
     Indication: CHRONIC LYMPHOCYTIC LEUKAEMIA
     Route: 042
     Dates: start: 20181206, end: 20181206
  2. CHLORAMINOPHENE [Suspect]
     Active Substance: CHLORAMBUCIL
     Indication: CHRONIC LYMPHOCYTIC LEUKAEMIA
     Route: 048
     Dates: start: 20181122, end: 20181206

REACTIONS (6)
  - Chills [Recovered/Resolved]
  - Anaphylactoid reaction [Recovered/Resolved]
  - Pyrexia [Recovered/Resolved]
  - Prothrombin time shortened [Recovered/Resolved]
  - Pancytopenia [Recovered/Resolved]
  - Feeling hot [Recovered/Resolved]

NARRATIVE: CASE EVENT DATE: 20181206
